FAERS Safety Report 21436232 (Version 3)
Quarter: 2022Q4

REPORT INFORMATION
  Report Type: Report from Study
  Country: US (occurrence: US)
  Receive Date: 20221010
  Receipt Date: 20221107
  Transmission Date: 20230113
  Serious: No
  Sender: FDA-Public Use
  Company Number: US-NOVARTISTESTPH-NVSC2022US227977

PATIENT
  Sex: Male

DRUGS (2)
  1. TASIGNA [Suspect]
     Active Substance: NILOTINIB
     Indication: Philadelphia positive chronic myeloid leukaemia
     Dosage: 300 MG, BID (2 CAPSULE)
     Route: 048
  2. TASIGNA [Suspect]
     Active Substance: NILOTINIB
     Dosage: 150 MG, BID (1 CAPSULE)
     Route: 065

REACTIONS (13)
  - Rhinorrhoea [Unknown]
  - Nasal congestion [Unknown]
  - Rash papular [Unknown]
  - Amnesia [Unknown]
  - Nausea [Unknown]
  - Pruritus [Unknown]
  - Rash [Unknown]
  - Cough [Unknown]
  - Arthralgia [Unknown]
  - Hyperhidrosis [Unknown]
  - Back pain [Unknown]
  - Nasopharyngitis [Recovered/Resolved]
  - White blood cell count decreased [Unknown]
